FAERS Safety Report 7331858-4 (Version None)
Quarter: 2011Q1

REPORT INFORMATION
  Report Type: 
  Country: None (occurrence: None)
  Receive Date: 20110304
  Receipt Date: 20100709
  Transmission Date: 20110831
  Serious: Yes (Hospitalization, Other)
  Sender: FDA-Public Use
  Company Number: US-PFIZER INC-2009255671

PATIENT
  Sex: Female
  Weight: 80 kg

DRUGS (7)
  1. ROCEPHIN [Concomitant]
     Dosage: 1 G, UNK
     Route: 042
  2. CIPROFLOXACIN [Concomitant]
     Dosage: 400 MG, UNK
     Route: 042
  3. COUMADIN [Concomitant]
     Dosage: UNK
  4. PACLITAXEL [Concomitant]
     Dosage: UNK
  5. DILANTIN [Suspect]
     Indication: CONVULSION
     Dosage: 300 MG, 1X/DAY
     Route: 042
     Dates: start: 20080301
  6. FLUCONAZOLE [Concomitant]
     Dosage: 100 MG, DAILY
     Route: 048
  7. DILANTIN [Suspect]
     Indication: CLONIC CONVULSION

REACTIONS (1)
  - STEVENS-JOHNSON SYNDROME [None]
